FAERS Safety Report 21903169 (Version 1)
Quarter: 2023Q1

REPORT INFORMATION
  Report Type: Spontaneous
  Country: FI (occurrence: FI)
  Receive Date: 20230124
  Receipt Date: 20230124
  Transmission Date: 20230418
  Serious: Yes (Other)
  Sender: FDA-Public Use
  Company Number: FI-BAYER-2023P003972

PATIENT
  Age: 80 Year
  Sex: Female

DRUGS (2)
  1. RIVAROXABAN [Suspect]
     Active Substance: RIVAROXABAN
     Indication: Anticoagulant therapy
     Route: 048
  2. LETROZOLE [Suspect]
     Active Substance: LETROZOLE
     Indication: Breast cancer
     Dosage: 1 DF, QD
     Dates: start: 2020

REACTIONS (10)
  - Breast cancer [Unknown]
  - Malaise [Unknown]
  - Influenza [Unknown]
  - Cough [Unknown]
  - Productive cough [Unknown]
  - Alopecia [Unknown]
  - Feeling abnormal [Unknown]
  - Dermatitis atopic [Unknown]
  - Pruritus [Unknown]
  - Atopy [Unknown]
